FAERS Safety Report 9937119 (Version 1)
Quarter: 2014Q1

REPORT INFORMATION
  Report Type: Report from Study
  Country: US (occurrence: US)
  Receive Date: 20140301
  Receipt Date: 20140301
  Transmission Date: 20141002
  Serious: Yes (Other)
  Sender: FDA-Public Use
  Company Number: US-ROCHE-1353007

PATIENT
  Sex: Female

DRUGS (8)
  1. AVASTIN [Suspect]
     Indication: RETINAL DETACHMENT
     Route: 065
     Dates: end: 2013
  2. LUCENTIS [Suspect]
     Indication: BLINDNESS
     Route: 065
  3. LUCENTIS [Suspect]
     Indication: RETINAL DETACHMENT
  4. LUCENTIS [Suspect]
     Indication: RETINAL HAEMORRHAGE
  5. HUMALOG INSULIN [Concomitant]
     Indication: DIABETES MELLITUS
  6. LANTUS SOLOSTAR [Concomitant]
  7. DIOVAN [Concomitant]
     Indication: HYPERTENSION
  8. CARVEDILOL [Concomitant]
     Indication: HYPERTENSION
     Route: 065

REACTIONS (9)
  - Retinal oedema [Unknown]
  - Blindness unilateral [Unknown]
  - Retinal detachment [Unknown]
  - Cervical spinal stenosis [Unknown]
  - Drug ineffective [Unknown]
  - Visual acuity reduced [Unknown]
  - Lacrimation increased [Unknown]
  - Vision blurred [Unknown]
  - Procedural pain [Unknown]
